FAERS Safety Report 10401921 (Version 1)
Quarter: 2014Q3

REPORT INFORMATION
  Report Type: Spontaneous
  Country: FR (occurrence: None)
  Receive Date: 20140814
  Receipt Date: 20140814
  Transmission Date: 20150326
  Serious: Yes (Other)
  Sender: FDA-Public Use
  Company Number: 2014SA102797

PATIENT
  Age: 76 Year
  Sex: Male

DRUGS (3)
  1. METFORMIN [Concomitant]
     Active Substance: METFORMIN HYDROCHLORIDE
  2. DAONIL [Concomitant]
     Active Substance: GLYBURIDE
  3. LASILIX RETARD [Suspect]
     Active Substance: FUROSEMIDE
     Indication: OEDEMA
     Route: 048
     Dates: start: 2014

REACTIONS (3)
  - Blood triglycerides increased [None]
  - Blood creatinine increased [None]
  - Diabetes mellitus inadequate control [None]
